FAERS Safety Report 19686615 (Version 3)
Quarter: 2022Q1

REPORT INFORMATION
  Report Type: Spontaneous
  Country: US (occurrence: None)
  Receive Date: 20210811
  Receipt Date: 20220329
  Transmission Date: 20220423
  Serious: Yes (Other)
  Sender: FDA-Public Use
  Company Number: 2021A664850

PATIENT
  Age: 18497 Day
  Sex: Female
  Weight: 49 kg

DRUGS (24)
  1. PRILOSEC [Suspect]
     Active Substance: OMEPRAZOLE MAGNESIUM
     Indication: Gastrooesophageal reflux disease
     Route: 048
  2. PRILOSEC [Suspect]
     Active Substance: OMEPRAZOLE MAGNESIUM
     Indication: Gastrooesophageal reflux disease
     Dosage: GENERIC
     Route: 065
  3. PRILOSEC OTC [Suspect]
     Active Substance: OMEPRAZOLE MAGNESIUM
     Indication: Gastrooesophageal reflux disease
     Route: 048
  4. PREVACID [Suspect]
     Active Substance: LANSOPRAZOLE
     Indication: Gastrooesophageal reflux disease
     Route: 065
  5. PROTONIX [Suspect]
     Active Substance: PANTOPRAZOLE SODIUM
     Indication: Gastrooesophageal reflux disease
     Route: 065
  6. PIROXICAM [Concomitant]
     Active Substance: PIROXICAM
  7. AMITRIPTYLINE [Concomitant]
     Active Substance: AMITRIPTYLINE
  8. CARBAMAZEPINE [Concomitant]
     Active Substance: CARBAMAZEPINE
  9. LISINOPRIL [Concomitant]
     Active Substance: LISINOPRIL
  10. ROCEPHIN [Concomitant]
     Active Substance: CEFTRIAXONE SODIUM
  11. TYLENOL [Concomitant]
     Active Substance: ACETAMINOPHEN
  12. RANITIDINE [Concomitant]
     Active Substance: RANITIDINE
  13. DIAZEPAM [Concomitant]
     Active Substance: DIAZEPAM
  14. NASONEX [Concomitant]
     Active Substance: MOMETASONE FUROATE
  15. FOLIC ACID [Concomitant]
     Active Substance: FOLIC ACID
  16. OYSTERCAL [Concomitant]
  17. ROBAXIN [Concomitant]
     Active Substance: METHOCARBAMOL
  18. FIORICET [Concomitant]
     Active Substance: ACETAMINOPHEN\BUTALBITAL\CAFFEINE
  19. FELDENE [Concomitant]
     Active Substance: PIROXICAM
  20. TEGRETOL [Concomitant]
     Active Substance: CARBAMAZEPINE
  21. VALIUM [Concomitant]
     Active Substance: DIAZEPAM
  22. BONVIA [Concomitant]
  23. SUCRALFATE [Concomitant]
     Active Substance: SUCRALFATE
  24. SPIRONOLACTONE [Concomitant]
     Active Substance: SPIRONOLACTONE

REACTIONS (3)
  - Acute kidney injury [Not Recovered/Not Resolved]
  - Renal failure [Unknown]
  - Chronic kidney disease [Unknown]

NARRATIVE: CASE EVENT DATE: 20090807
